FAERS Safety Report 20444417 (Version 1)
Quarter: 2022Q1

REPORT INFORMATION
  Report Type: Spontaneous
  Country: US (occurrence: None)
  Receive Date: 20220208
  Receipt Date: 20220208
  Transmission Date: 20220423
  Serious: No
  Sender: FDA-Public Use
  Company Number: 2022A054193

PATIENT
  Age: 29376 Day
  Sex: Female

DRUGS (3)
  1. FARXIGA [Suspect]
     Active Substance: DAPAGLIFLOZIN PROPANEDIOL
     Route: 048
     Dates: start: 20220126
  2. PIOGLITAZONE [Concomitant]
     Active Substance: PIOGLITAZONE
     Dosage: 30MG ONCE PER DAY
  3. METFORMIN [Concomitant]
     Active Substance: METFORMIN HYDROCHLORIDE
     Dosage: ONE HALF OF 1000MG TAB TWICE A DAY

REACTIONS (2)
  - Blood glucose increased [Not Recovered/Not Resolved]
  - Oxygen saturation abnormal [Unknown]

NARRATIVE: CASE EVENT DATE: 20220131
